FAERS Safety Report 24670113 (Version 3)
Quarter: 2025Q1

REPORT INFORMATION
  Report Type: Spontaneous
  Country: PR (occurrence: PR)
  Receive Date: 20241127
  Receipt Date: 20250124
  Transmission Date: 20250408
  Serious: Yes (Other)
  Sender: PFIZER
  Company Number: PR-PFIZER INC-202400308897

PATIENT
  Age: 74 Year
  Sex: Female

DRUGS (11)
  1. XELJANZ XR [Suspect]
     Active Substance: TOFACITINIB CITRATE
     Dosage: 11 MG, DAILY
     Route: 048
     Dates: start: 202410, end: 2024
  2. XELJANZ XR [Suspect]
     Active Substance: TOFACITINIB CITRATE
     Dosage: 11MG: ONE TABLET DAILY
     Route: 048
     Dates: start: 2024
  3. XELJANZ XR [Suspect]
     Active Substance: TOFACITINIB CITRATE
     Dosage: 11MG: TAKE ONE TABLET DAILY, ORALLY
     Route: 048
     Dates: start: 202410, end: 20250122
  4. BONIVA [Concomitant]
     Active Substance: IBANDRONATE SODIUM
  5. BACLOFEN [Concomitant]
     Active Substance: BACLOFEN
  6. BETHANECHOL CHLORIDE [Concomitant]
     Active Substance: BETHANECHOL CHLORIDE
  7. DULOXETINE [Concomitant]
     Active Substance: DULOXETINE
  8. JARDIANCE [Concomitant]
     Active Substance: EMPAGLIFLOZIN
  9. AMLODIPINE BESYLATE [Concomitant]
     Active Substance: AMLODIPINE BESYLATE
  10. VASOFLEX [PRAZOSIN HYDROCHLORIDE] [Concomitant]
  11. AZATHIOPRINE [Concomitant]
     Active Substance: AZATHIOPRINE

REACTIONS (17)
  - Tooth extraction [Unknown]
  - Post procedural haemorrhage [Recovering/Resolving]
  - Post procedural inflammation [Unknown]
  - Asphyxia [Unknown]
  - Dizziness [Not Recovered/Not Resolved]
  - Headache [Not Recovered/Not Resolved]
  - Pain [Not Recovered/Not Resolved]
  - Burning sensation [Not Recovered/Not Resolved]
  - Sensitivity to weather change [Not Recovered/Not Resolved]
  - Arthropod bite [Unknown]
  - Cellulitis [Unknown]
  - Memory impairment [Not Recovered/Not Resolved]
  - Blood pressure systolic increased [Not Recovered/Not Resolved]
  - Asthenia [Unknown]
  - Arthritis [Unknown]
  - Bone pain [Unknown]
  - Dyspnoea [Unknown]

NARRATIVE: CASE EVENT DATE: 20240101
